FAERS Safety Report 7563397-X (Version None)
Quarter: 2011Q2

REPORT INFORMATION
  Report Type: 
  Country: None (occurrence: None)
  Receive Date: 20110622
  Receipt Date: 20110615
  Transmission Date: 20111010
  Serious: Yes (Other)
  Sender: FDA-Public Use
  Company Number: A0932122A

PATIENT
  Age: 59 Year
  Sex: Female

DRUGS (1)
  1. FLOVENT [Suspect]
     Dosage: 44MCG UNKNOWN
     Route: 065
     Dates: start: 20030612

REACTIONS (1)
  - LUNG NEOPLASM MALIGNANT [None]
